FAERS Safety Report 17778243 (Version 1)
Quarter: 2020Q2

REPORT INFORMATION
  Report Type: Spontaneous
  Country: US (occurrence: US)
  Receive Date: 20200513
  Receipt Date: 20200513
  Transmission Date: 20200714
  Serious: No
  Sender: FDA-Public Use
  Company Number: US-009507513-2004USA008799

PATIENT
  Sex: Male

DRUGS (1)
  1. ZERBAXA [Suspect]
     Active Substance: CEFTOLOZANE SULFATE\TAZOBACTAM SODIUM
     Indication: CELLULITIS
     Dosage: 4.5 GM VIA CONTINUOUS INFUSION
     Route: 042

REACTIONS (2)
  - Product use in unapproved indication [Unknown]
  - No adverse event [Unknown]
